FAERS Safety Report 10497556 (Version 1)
Quarter: 2014Q4

REPORT INFORMATION
  Report Type: Spontaneous
  Country: US (occurrence: US)
  Receive Date: 20141006
  Receipt Date: 20141006
  Transmission Date: 20150528
  Serious: No
  Sender: FDA-Public Use
  Company Number: US-009507513-1409USA009494

PATIENT
  Age: 18 Year
  Sex: Female
  Weight: 43.99 kg

DRUGS (1)
  1. NEXPLANON [Suspect]
     Active Substance: ETONOGESTREL
     Indication: CONTRACEPTION
     Dosage: 1 ROD FOR THREE YEARS
     Route: 059
     Dates: start: 201312

REACTIONS (3)
  - Arthropod bite [Not Recovered/Not Resolved]
  - Implant site erythema [Not Recovered/Not Resolved]
  - Implant site pruritus [Not Recovered/Not Resolved]

NARRATIVE: CASE EVENT DATE: 20140916
